FAERS Safety Report 12722653 (Version 1)
Quarter: 2016Q3

REPORT INFORMATION
  Report Type: Spontaneous
  Country: US (occurrence: US)
  Receive Date: 20160907
  Receipt Date: 20160907
  Transmission Date: 20161109
  Serious: Yes (Other)
  Sender: FDA-Public Use
  Company Number: US-ALLERGAN-1668012US

PATIENT
  Age: 78 Year
  Sex: Female

DRUGS (1)
  1. RESTASIS [Suspect]
     Active Substance: CYCLOSPORINE
     Indication: PRODUCT USED FOR UNKNOWN INDICATION
     Route: 047

REACTIONS (5)
  - Drug dose omission [Unknown]
  - Visual acuity reduced [Unknown]
  - Impaired driving ability [Unknown]
  - Cerebrovascular accident [Unknown]
  - Cataract [Unknown]
